FAERS Safety Report 21232372 (Version 1)
Quarter: 2022Q3

REPORT INFORMATION
  Report Type: Spontaneous
  Country: US (occurrence: None)
  Receive Date: 20220818
  Receipt Date: 20220818
  Transmission Date: 20221027
  Serious: No
  Sender: FDA-Public Use
  Company Number: None

PATIENT
  Age: 70 Year
  Sex: Male
  Weight: 108.86 kg

DRUGS (19)
  1. MEKTOVI [Suspect]
     Active Substance: BINIMETINIB
     Indication: Malignant melanoma
     Dosage: FREQUENCY : TWICE A DAY;?
     Route: 048
     Dates: start: 20220418
  2. BRAFTOVI [Suspect]
     Active Substance: ENCORAFENIB
     Indication: Malignant melanoma
     Dosage: FREQUENCY : DAILY;?
     Route: 048
     Dates: start: 20220418
  3. ADVANCED CALCIUM/D/MAGNESIUM [Concomitant]
  4. ALEVE [Concomitant]
     Active Substance: NAPROXEN SODIUM
  5. ATIVAN [Concomitant]
     Active Substance: LORAZEPAM
  6. BABY SUPER DAILY D3 [Concomitant]
  7. BREO ELLIPTA [Concomitant]
     Active Substance: FLUTICASONE FUROATE\VILANTEROL TRIFENATATE
  8. CVS SUPER B COMPLEX [Concomitant]
  9. FLUTICASONE [Concomitant]
     Active Substance: FLUTICASONE
  10. HYDROCORTISONE [Concomitant]
     Active Substance: HYDROCORTISONE
  11. LISINOPRIL [Concomitant]
     Active Substance: LISINOPRIL
  12. METOPROLOL [Concomitant]
     Active Substance: METOPROLOL
  13. OPDIVO [Concomitant]
     Active Substance: NIVOLUMAB
  14. PEPCID [Concomitant]
     Active Substance: FAMOTIDINE
  15. POTASSIUM [Concomitant]
     Active Substance: POTASSIUM
  16. STOOL SOFTENER (DOCUSATE) [Concomitant]
     Active Substance: DOCUSATE
  17. SUPER MULTIVITAMIN [Concomitant]
  18. TYLENOL [Concomitant]
     Active Substance: ACETAMINOPHEN
  19. VENTOLIN [Concomitant]
     Active Substance: ALBUTEROL SULFATE

REACTIONS (1)
  - Hepatic enzyme increased [None]
